FAERS Safety Report 6768513-5 (Version None)
Quarter: 2010Q2

REPORT INFORMATION
  Report Type: 
  Country: None (occurrence: None)
  Receive Date: 20100614
  Receipt Date: 20100604
  Transmission Date: 20101027
  Serious: Yes (Other)
  Sender: FDA-Public Use
  Company Number: DE-PFIZER INC-2010070132

PATIENT
  Age: 65 Year
  Sex: Male

DRUGS (1)
  1. SORTIS [Suspect]
     Dosage: UNK

REACTIONS (1)
  - BLOOD PRESSURE INCREASED [None]
